FAERS Safety Report 16136993 (Version 1)
Quarter: 2019Q2

REPORT INFORMATION
  Report Type: Report from Study
  Country: US (occurrence: US)
  Receive Date: 20190401
  Receipt Date: 20190401
  Transmission Date: 20190711
  Serious: Yes (Other)
  Sender: FDA-Public Use
  Company Number: US-AUROBINDO-AUR-APL-2019-016654

PATIENT

DRUGS (4)
  1. DEXAMETHASONE INJECTION [Suspect]
     Active Substance: DEXAMETHASONE
     Dosage: UNK,SINGLE DOSE DEXAMETHASONE WITH EACH MAINTENANCE INFUSION
     Route: 065
  2. DEXAMETHASONE INJECTION [Suspect]
     Active Substance: DEXAMETHASONE
     Indication: PRODUCT USED FOR UNKNOWN INDICATION
     Dosage: 40 MILLIGRAM, DAILY,THREE 4-DAY CYCLES OF DEXAMETHASONE AT 2 WEEKLY INTERVALS
     Route: 065
  3. RITUXIMAB. [Suspect]
     Active Substance: RITUXIMAB
     Indication: PRODUCT USED FOR UNKNOWN INDICATION
     Dosage: UNK, DURING WEEKS 1, 2, 3 AND 4 OF INDUCTION
     Route: 065
  4. RITUXIMAB. [Suspect]
     Active Substance: RITUXIMAB
     Dosage: 375 MILLIGRAM/SQ. METER,EVERY FOUR MONTHS
     Route: 065

REACTIONS (1)
  - Hypogammaglobulinaemia [Unknown]
